FAERS Safety Report 16995719 (Version 1)
Quarter: 2019Q4

REPORT INFORMATION
  Report Type: Spontaneous
  Country: CN (occurrence: CN)
  Receive Date: 20191105
  Receipt Date: 20191105
  Transmission Date: 20200122
  Serious: Yes (Other)
  Sender: FDA-Public Use
  Company Number: CN-PFIZER INC-2019472360

PATIENT
  Age: 29 Year
  Sex: Male
  Weight: 73 kg

DRUGS (5)
  1. ZAVEDOS [Suspect]
     Active Substance: IDARUBICIN
     Indication: CHEMOTHERAPY
     Dosage: 10 MG, 1X/DAY+ 0.9% NS 100ML D1-3
     Route: 041
     Dates: start: 20191005, end: 20191007
  2. SODIUM CHLORIDE. [Concomitant]
     Active Substance: SODIUM CHLORIDE
     Dosage: 100 ML, 1X/DAY
     Route: 041
     Dates: start: 20191005, end: 20191007
  3. CYTOSAR [Suspect]
     Active Substance: CYTARABINE
     Indication: CHEMOTHERAPY
     Dosage: 200 MG, 1X/DAY + 0.9% NS 500ML D1-5
     Route: 041
     Dates: start: 20191005, end: 20191009
  4. SODIUM CHLORIDE. [Concomitant]
     Active Substance: SODIUM CHLORIDE
     Indication: VEHICLE SOLUTION USE
     Dosage: 500 ML, 1X/DAY
     Route: 041
     Dates: start: 20191005, end: 20191009
  5. RECOMBINANT HUMAN GRANULOCYTE COLONY STIMULATING FACTOR [Concomitant]
     Indication: PROPHYLAXIS
     Dosage: 300 ?G + NS 100ML IV. DRIP ONCE DAILY
     Dates: start: 20191012, end: 20191014

REACTIONS (4)
  - Platelet count decreased [Recovering/Resolving]
  - Neutrophil count decreased [Recovering/Resolving]
  - Pyrexia [Recovering/Resolving]
  - White blood cell count decreased [Recovering/Resolving]

NARRATIVE: CASE EVENT DATE: 20191016
